FAERS Safety Report 13121128 (Version 1)
Quarter: 2017Q1

REPORT INFORMATION
  Report Type: Other
  Country: US (occurrence: US)
  Receive Date: 20170117
  Receipt Date: 20170117
  Transmission Date: 20170428
  Serious: Yes (Death)
  Sender: FDA-Public Use
  Company Number: US-OSMOTICA_PHARMACEUTICAL_US_LLC-POI0573201700010

PATIENT
  Age: 28 Year
  Sex: Male

DRUGS (5)
  1. LIDOCAINE. [Suspect]
     Active Substance: LIDOCAINE
     Indication: ORAL CANDIDIASIS
     Dates: end: 2015
  2. MELOXICAM. [Suspect]
     Active Substance: MELOXICAM
     Dates: end: 2015
  3. VENLAFAXINE [Suspect]
     Active Substance: VENLAFAXINE HYDROCHLORIDE
     Dates: end: 2015
  4. LACOSAMIDE. [Suspect]
     Active Substance: LACOSAMIDE
     Dates: end: 2015
  5. TRAZODONE [Suspect]
     Active Substance: TRAZODONE HYDROCHLORIDE
     Dates: end: 2015

REACTIONS (3)
  - Medication error [Fatal]
  - Cardiac arrest [Fatal]
  - Seizure [Fatal]

NARRATIVE: CASE EVENT DATE: 2015
